FAERS Safety Report 8243801-4 (Version None)
Quarter: 2012Q1

REPORT INFORMATION
  Report Type: 
  Country: None (occurrence: None)
  Receive Date: 20120329
  Receipt Date: 20111208
  Transmission Date: 20120608
  Serious: No
  Sender: FDA-Public Use
  Company Number: US-MYLANLABS-2011S1025219

PATIENT
  Age: 34 Year
  Sex: Male
  Weight: 235.87 kg

DRUGS (8)
  1. NEXIUM [Concomitant]
     Indication: GASTROOESOPHAGEAL REFLUX DISEASE
     Route: 048
  2. LEVOTHYROXINE SODIUM [Concomitant]
     Indication: THYROID DISORDER
     Route: 048
  3. EMSAM [Suspect]
     Indication: DEPRESSION
     Dosage: QD
     Route: 062
     Dates: start: 20111001, end: 20111130
  4. RESTORIL [Concomitant]
     Indication: INSOMNIA
     Route: 048
  5. EMSAM [Suspect]
     Dosage: CHANGED Q24H
     Route: 062
     Dates: start: 20111201, end: 20111204
  6. LISINOPRIL [Concomitant]
     Indication: BLOOD PRESSURE INCREASED
     Route: 048
  7. HYDROCODONE [Concomitant]
     Indication: PAIN
     Route: 048
  8. PROAIR HFA [Concomitant]
     Indication: ASTHMA
     Route: 048

REACTIONS (4)
  - PROTEINURIA [None]
  - URINE COLOUR ABNORMAL [None]
  - URINARY HESITATION [None]
  - DYSURIA [None]
